FAERS Safety Report 21545196 (Version 2)
Quarter: 2023Q1

REPORT INFORMATION
  Report Type: Report from Study
  Country: CO (occurrence: CO)
  Receive Date: 20221103
  Receipt Date: 20230109
  Transmission Date: 20230418
  Serious: Yes (Other)
  Sender: FDA-Public Use
  Company Number: CO-002147023-NVSC2022CO099381

PATIENT
  Sex: Female
  Weight: 56 kg

DRUGS (3)
  1. BROLUCIZUMAB [Suspect]
     Active Substance: BROLUCIZUMAB
     Indication: Macular degeneration
     Dosage: 0.5 MG, QMO (ONCE A MONTH)
     Route: 047
     Dates: start: 20211216
  2. BROLUCIZUMAB [Suspect]
     Active Substance: BROLUCIZUMAB
     Dosage: 0.5 MG, QMO
     Route: 047
     Dates: start: 20220217
  3. BROLUCIZUMAB [Suspect]
     Active Substance: BROLUCIZUMAB
     Dosage: 0.5 MG, QMO
     Route: 047
     Dates: start: 20220412

REACTIONS (3)
  - Subretinal fluid [Recovering/Resolving]
  - Eye inflammation [Unknown]
  - Visual impairment [Recovering/Resolving]
